FAERS Safety Report 6772489-4 (Version None)
Quarter: 2010Q2

REPORT INFORMATION
  Report Type: 
  Country: None (occurrence: None)
  Receive Date: 20100616
  Receipt Date: 20100322
  Transmission Date: 20101027
  Serious: No
  Sender: FDA-Public Use
  Company Number: US-ASTRAZENECA-2010SE09432

PATIENT
  Sex: Female

DRUGS (3)
  1. PULMICORT [Suspect]
     Route: 055
  2. RHINOCORT [Suspect]
     Route: 045
  3. PRILOSEC DELAYED RELEASE [Suspect]
     Route: 048

REACTIONS (4)
  - CHRONIC OBSTRUCTIVE PULMONARY DISEASE [None]
  - COUGH [None]
  - GASTROOESOPHAGEAL REFLUX DISEASE [None]
  - SINUSITIS [None]
